FAERS Safety Report 15196118 (Version 1)
Quarter: 2018Q3

REPORT INFORMATION
  Report Type: Spontaneous
  Country: FR (occurrence: FR)
  Receive Date: 20180725
  Receipt Date: 20180725
  Transmission Date: 20181010
  Serious: Yes (Hospitalization)
  Sender: FDA-Public Use
  Company Number: FR-PFIZER INC-2018293029

PATIENT
  Age: 38 Year
  Sex: Male

DRUGS (3)
  1. ALCOOL [Suspect]
     Active Substance: ALCOHOL
     Dosage: 48 IU, UNK
     Route: 048
     Dates: start: 20180416, end: 20180417
  2. XANAX [Suspect]
     Active Substance: ALPRAZOLAM
     Indication: DEPRESSION
     Dosage: 10 DF, SINGLE
     Route: 048
     Dates: start: 20180417, end: 20180417
  3. COCAINE [Suspect]
     Active Substance: COCAINE
     Dosage: 2 G, SINGLE
     Dates: start: 20180416, end: 20180417

REACTIONS (2)
  - Drug abuse [Recovered/Resolved]
  - Mental disorder [Recovered/Resolved]

NARRATIVE: CASE EVENT DATE: 20180416
